FAERS Safety Report 21991876 (Version 1)
Quarter: 2023Q1

REPORT INFORMATION
  Report Type: Spontaneous
  Country: DE (occurrence: DE)
  Receive Date: 20230214
  Receipt Date: 20230214
  Transmission Date: 20230417
  Serious: Yes (Other)
  Sender: FDA-Public Use
  Company Number: DE-EMBRYOTOX-202100378

PATIENT
  Sex: Male
  Weight: 2.97 kg

DRUGS (2)
  1. ESCITALOPRAM OXALATE [Suspect]
     Active Substance: ESCITALOPRAM OXALATE
     Indication: Exposure during pregnancy
     Dosage: 10 MG, QD, 10 [MG/D ]/ AND DEPRESSION
     Route: 064
     Dates: start: 20201027, end: 20210812
  2. PANTOPRAZOLE [Concomitant]
     Active Substance: PANTOPRAZOLE
     Indication: Exposure during pregnancy
     Dosage: 20 MG, QD, 20 [MG/D ]
     Route: 064

REACTIONS (4)
  - Respiratory disorder neonatal [Recovered/Resolved]
  - Bradycardia neonatal [Recovered/Resolved]
  - Atrial septal defect [Unknown]
  - Pregnancy [Unknown]

NARRATIVE: CASE EVENT DATE: 20210801
